FAERS Safety Report 7676404-0 (Version None)
Quarter: 2011Q3

REPORT INFORMATION
  Report Type: 
  Country: None (occurrence: None)
  Receive Date: 20110811
  Receipt Date: 20110805
  Transmission Date: 20111222
  Serious: Yes (Hospitalization, Other)
  Sender: FDA-Public Use
  Company Number: US-PFIZER INC-2010043191

PATIENT
  Sex: Male

DRUGS (3)
  1. CHANTIX [Suspect]
     Indication: SMOKING CESSATION THERAPY
     Dosage: FIRST MONTH PACK
     Route: 048
     Dates: start: 20070731, end: 20080303
  2. ALDARA [Concomitant]
     Indication: SKIN DISORDER
     Dosage: 5 %, UNK
     Dates: start: 20060101, end: 20080101
  3. DIOVAN [Concomitant]
     Indication: HYPERTENSION
     Dosage: UNK
     Dates: start: 20060101

REACTIONS (8)
  - MENTAL DISORDER [None]
  - SUICIDE ATTEMPT [None]
  - PSYCHOTIC DISORDER [None]
  - ANXIETY [None]
  - AGGRESSION [None]
  - IRRITABILITY [None]
  - AGITATION [None]
  - DEPRESSION [None]
